FAERS Safety Report 6486125-8 (Version None)
Quarter: 2009Q4

REPORT INFORMATION
  Report Type: 
  Country: None (occurrence: None)
  Receive Date: 20091207
  Receipt Date: 20091123
  Transmission Date: 20100525
  Serious: Yes (Hospitalization, Other)
  Sender: FDA-Public Use
  Company Number: 2009AC000443

PATIENT
  Age: 74 Year
  Sex: Male

DRUGS (12)
  1. DIGOXIN [Suspect]
     Dosage: ;PO
     Route: 048
  2. CARVEDILOL [Concomitant]
  3. FUROSEMIDE [Concomitant]
  4. RAMIPRIL [Concomitant]
  5. ASPIRIN [Concomitant]
  6. PERCOCET [Concomitant]
  7. ALTACE [Concomitant]
  8. POTASSIUM [Concomitant]
  9. COREG [Concomitant]
  10. FLOMAX [Concomitant]
  11. VESICARE [Concomitant]
  12. NEXIUM [Concomitant]

REACTIONS (15)
  - CARDIAC FAILURE [None]
  - CARDIOMYOPATHY [None]
  - DIZZINESS [None]
  - DYSPNOEA [None]
  - ECONOMIC PROBLEM [None]
  - FLUID RETENTION [None]
  - HEART RATE DECREASED [None]
  - IMPLANTABLE DEFIBRILLATOR INSERTION [None]
  - LOSS OF CONSCIOUSNESS [None]
  - MULTIPLE INJURIES [None]
  - RENAL CYST [None]
  - RENAL FAILURE [None]
  - SURGERY [None]
  - THERAPEUTIC AGENT TOXICITY [None]
  - UNEVALUABLE EVENT [None]
